FAERS Safety Report 10597001 (Version 3)
Quarter: 2015Q1

REPORT INFORMATION
  Report Type: Report from Study
  Country: DE (occurrence: DE)
  Receive Date: 20141120
  Receipt Date: 20150206
  Transmission Date: 20150720
  Serious: Yes (Death, Life-Threatening, Other)
  Sender: FDA-Public Use
  Company Number: DE-ROCHE-1224827

PATIENT
  Age: 30 Year
  Sex: Female

DRUGS (17)
  1. RITUXIMAB [Suspect]
     Active Substance: RITUXIMAB
     Indication: POST TRANSPLANT LYMPHOPROLIFERATIVE DISORDER
     Dosage: SECOND CYCLE
     Route: 042
     Dates: start: 20130211
  2. VINCRISTIN [Suspect]
     Active Substance: VINCRISTINE
     Indication: MALIGNANT LYMPHOID NEOPLASM
     Dosage: GIVEN ON DAYS 50, 72, 96, 116
     Route: 065
  3. CYTARABIN [Suspect]
     Active Substance: CYTARABINE
     Dosage: SECOND CYCLE
     Route: 037
     Dates: start: 20130211
  4. METHOTREXATE [Suspect]
     Active Substance: METHOTREXATE
     Route: 037
     Dates: start: 20130211
  5. DOXORUBICIN [Suspect]
     Active Substance: DOXORUBICIN
     Indication: MALIGNANT LYMPHOID NEOPLASM
     Dosage: GIVEN ON DAYS 50, 72, 96, 116
     Route: 065
  6. PREDNISOLON [Suspect]
     Active Substance: PREDNISOLONE
     Dosage: GIVEN SINCE DAY 146
     Route: 065
  7. PROGRAF [Suspect]
     Active Substance: TACROLIMUS\TACROLIMUS ANHYDROUS
     Indication: MALIGNANT LYMPHOID NEOPLASM
     Dosage: GIVEN UNTIL DAY 146 OF THE THERAPY
     Route: 065
  8. EVEROLIMUS [Suspect]
     Active Substance: EVEROLIMUS
     Indication: MALIGNANT LYMPHOID NEOPLASM
     Dosage: GIVEN UNTIL DAY 146 OF THE THERAPY
     Route: 065
  9. CYTARABIN [Suspect]
     Active Substance: CYTARABINE
     Indication: MALIGNANT LYMPHOID NEOPLASM
     Dosage: FIRST CYCLE
     Route: 042
     Dates: start: 20130115
  10. METHOTREXATE [Suspect]
     Active Substance: METHOTREXATE
     Indication: MALIGNANT LYMPHOID NEOPLASM
     Dosage: FIRST CYCLE
     Route: 037
     Dates: start: 20130111
  11. PREDNISOLON [Suspect]
     Active Substance: PREDNISOLONE
     Indication: MALIGNANT LYMPHOID NEOPLASM
     Route: 065
  12. RITUXIMAB [Suspect]
     Active Substance: RITUXIMAB
     Indication: CENTRAL NERVOUS SYSTEM LYMPHOMA
     Dosage: FIRST CYCLE
     Route: 042
     Dates: start: 20130115
  13. CYTARABIN [Suspect]
     Active Substance: CYTARABINE
     Dosage: SECOND CYCLE
     Route: 042
     Dates: start: 20130211
  14. CYTARABIN [Suspect]
     Active Substance: CYTARABINE
     Dosage: FIRST CYCLE
     Route: 037
     Dates: start: 20130115
  15. CYCLOPHOSPHAMIDE. [Suspect]
     Active Substance: CYCLOPHOSPHAMIDE
     Indication: MALIGNANT LYMPHOID NEOPLASM
     Dosage: GIVEN ON DAYS 50, 72, 96, 116
     Route: 065
  16. THIOTEPA. [Suspect]
     Active Substance: THIOTEPA
     Indication: MALIGNANT LYMPHOID NEOPLASM
     Dosage: FIRST CYCLE
     Route: 042
     Dates: start: 20130115
  17. THIOTEPA. [Suspect]
     Active Substance: THIOTEPA
     Route: 042
     Dates: start: 20130211

REACTIONS (8)
  - Meningitis [Fatal]
  - Stomatitis [Unknown]
  - Platelet count decreased [Unknown]
  - Multi-organ failure [Fatal]
  - Central nervous system fungal infection [Fatal]
  - Neutropenic sepsis [Fatal]
  - Respiratory failure [Fatal]
  - White blood cell count decreased [Unknown]

NARRATIVE: CASE EVENT DATE: 20130121
